FAERS Safety Report 8918134 (Version 1)
Quarter: 2012Q4

REPORT INFORMATION
  Report Type: 
  Country: US (occurrence: US)
  Receive Date: 20121120
  Receipt Date: 20121120
  Transmission Date: 20130627
  Serious: No
  Sender: FDA-Public Use
  Company Number: US-ASTRAZENECA-2012SE22581

PATIENT
  Age: 75 Year
  Sex: Female
  Weight: 43.5 kg

DRUGS (9)
  1. NEXIUM [Suspect]
     Indication: GASTROOESOPHAGEAL REFLUX DISEASE
     Route: 048
  2. OMEPRAZOLE [Suspect]
     Indication: GASTROOESOPHAGEAL REFLUX DISEASE
     Route: 048
  3. HCTZ [Concomitant]
     Indication: BLOOD PRESSURE
  4. POTASSIUM [Concomitant]
     Indication: BLOOD PRESSURE
  5. BENICAR [Concomitant]
     Indication: BLOOD PRESSURE
  6. VITAMIN SUPPLEMENTS [Concomitant]
  7. VITAMIN D [Concomitant]
  8. PERCOCET [Concomitant]
     Indication: ARTHRITIS
  9. TYLENOL [Concomitant]
     Indication: ARTHRITIS

REACTIONS (2)
  - Drug effect incomplete [Unknown]
  - Intentional drug misuse [Unknown]
